FAERS Safety Report 6910662-2 (Version None)
Quarter: 2010Q3

REPORT INFORMATION
  Report Type: 
  Country: None (occurrence: None)
  Receive Date: 20100806
  Receipt Date: 20091020
  Transmission Date: 20110219
  Serious: Yes (Life-Threatening, Hospitalization, Other)
  Sender: FDA-Public Use
  Company Number: AU-ASTRAZENECA-2009SE21345

PATIENT
  Age: 0 Day
  Sex: Male

DRUGS (12)
  1. SEROQUEL XR [Suspect]
     Indication: PSYCHOTIC DISORDER
     Dosage: TOTAL DAILY DOSE 900-1000 MG EVERY NIGHT
     Route: 064
  2. SEROQUEL XR [Suspect]
     Indication: DRUG EXPOSURE DURING PREGNANCY
     Dosage: TOTAL DAILY DOSE 900-1000 MG EVERY NIGHT
     Route: 064
  3. EFFEXOR [Interacting]
     Indication: ANTIDEPRESSANT THERAPY
     Route: 064
     Dates: start: 20090101
  4. EFFEXOR [Interacting]
     Indication: DRUG EXPOSURE DURING PREGNANCY
     Route: 064
     Dates: start: 20090101
  5. ZOLOFT [Interacting]
     Indication: ANTIDEPRESSANT THERAPY
     Route: 064
     Dates: start: 20090101
  6. ZOLOFT [Interacting]
     Indication: DRUG EXPOSURE DURING PREGNANCY
     Route: 064
     Dates: start: 20090101
  7. HALOPERIDOL [Suspect]
     Indication: PSYCHOTIC DISORDER
     Dosage: 7.5-12.5 MG DAILY
     Route: 064
     Dates: start: 20090101
  8. HALOPERIDOL [Suspect]
     Indication: DRUG EXPOSURE DURING PREGNANCY
     Dosage: 7.5-12.5 MG DAILY
     Route: 064
     Dates: start: 20090101
  9. ELEVIT [Concomitant]
     Indication: PROPHYLAXIS OF NEURAL TUBE DEFECT
     Route: 064
     Dates: start: 20090101, end: 20090828
  10. ELEVIT [Concomitant]
     Indication: DRUG EXPOSURE DURING PREGNANCY
     Route: 064
     Dates: start: 20090101, end: 20090828
  11. FOLIC ACID [Concomitant]
     Dosage: DAILY
  12. EPIDURAL ANESTHESIA [Concomitant]
     Indication: CAESAREAN SECTION

REACTIONS (7)
  - DRUG INTERACTION [None]
  - DRUG WITHDRAWAL SYNDROME NEONATAL [None]
  - JAUNDICE [None]
  - NEONATAL RESPIRATORY FAILURE [None]
  - PREMATURE BABY [None]
  - RESPIRATORY DEPRESSION [None]
  - RESPIRATORY DISTRESS [None]
